FAERS Safety Report 13152157 (Version 2)
Quarter: 2017Q1

REPORT INFORMATION
  Report Type: Report from Study
  Country: None (occurrence: BE)
  Receive Date: 20170125
  Receipt Date: 20170209
  Transmission Date: 20170428
  Serious: Yes (Other)
  Sender: FDA-Public Use
  Company Number: BE-ABBVIE-17K-013-1851463-00

PATIENT
  Sex: Female

DRUGS (3)
  1. DUODOPA [Suspect]
     Active Substance: CARBIDOPA\LEVODOPA
     Dosage: AM= 6 ML; CD= 3 ML/H DURING 16 HRS; ED= 1 ML
     Route: 050
     Dates: start: 20160804
  2. DUODOPA [Suspect]
     Active Substance: CARBIDOPA\LEVODOPA
     Dosage: DOSES CONTINUOUSLY MONITORED AND ADAPTED
     Route: 050
     Dates: start: 20100421, end: 20160804
  3. DUODOPA [Suspect]
     Active Substance: CARBIDOPA\LEVODOPA
     Indication: PARKINSON^S DISEASE
     Dosage: AM= 5 ML; CD= 2 ML/H DURING 16 HRS; ED= 1.5 ML
     Route: 050
     Dates: start: 20100419, end: 20100421

REACTIONS (3)
  - B-cell lymphoma [Unknown]
  - Weight decreased [Unknown]
  - Asthenia [Unknown]
